FAERS Safety Report 17401689 (Version 1)
Quarter: 2020Q1

REPORT INFORMATION
  Report Type: Spontaneous
  Country: US (occurrence: US)
  Receive Date: 20200210
  Receipt Date: 20200210
  Transmission Date: 20200409
  Serious: Yes (Other)
  Sender: FDA-Public Use
  Company Number: None

PATIENT
  Age: 47 Year
  Sex: Female

DRUGS (1)
  1. ALTRENO [Suspect]
     Active Substance: TRETINOIN
     Indication: ACNE
     Dates: start: 20200106, end: 20200209

REACTIONS (4)
  - Anxiety [None]
  - Depression [None]
  - Product use complaint [None]
  - Suicidal ideation [None]

NARRATIVE: CASE EVENT DATE: 20200209
